FAERS Safety Report 10553850 (Version 1)
Quarter: 2014Q4

REPORT INFORMATION
  Report Type: Report from Study
  Country: CA (occurrence: CA)
  Receive Date: 20141030
  Receipt Date: 20141030
  Transmission Date: 20150529
  Serious: Yes (Other)
  Sender: FDA-Public Use
  Company Number: CA-BAYER-2014-155990

PATIENT
  Age: 65 Year
  Sex: Female
  Weight: 65 kg

DRUGS (4)
  1. BETASERON [Suspect]
     Active Substance: INTERFERON BETA-1B
     Indication: MULTIPLE SCLEROSIS
     Dosage: 0.250 MG, UNK
     Dates: start: 20050823
  2. ACETAMINOPHEN. [Concomitant]
     Active Substance: ACETAMINOPHEN
  3. PARIET [Concomitant]
     Active Substance: RABEPRAZOLE SODIUM
  4. BACLOFEN. [Concomitant]
     Active Substance: BACLOFEN

REACTIONS (5)
  - Abasia [Not Recovered/Not Resolved]
  - Rash [Recovering/Resolving]
  - Herpes zoster [Recovering/Resolving]
  - Drug dose omission [None]
  - Gait disturbance [Not Recovered/Not Resolved]

NARRATIVE: CASE EVENT DATE: 20141011
